FAERS Safety Report 7508795-5 (Version None)
Quarter: 2011Q2

REPORT INFORMATION
  Report Type: 
  Country: None (occurrence: None)
  Receive Date: 20110527
  Receipt Date: 20110307
  Transmission Date: 20111010
  Serious: No
  Sender: FDA-Public Use
  Company Number: A0917620A

PATIENT
  Sex: Male

DRUGS (3)
  1. ALBUTEROL SULFATE AUTOHALER [Suspect]
     Route: 065
  2. PROAIR HFA [Suspect]
     Route: 065
  3. VENTOLIN [Suspect]
     Route: 065

REACTIONS (1)
  - DRUG INEFFECTIVE [None]
